FAERS Safety Report 7950612-3 (Version None)
Quarter: 2011Q4

REPORT INFORMATION
  Report Type: 
  Country: None (occurrence: None)
  Receive Date: 20111130
  Receipt Date: 20111118
  Transmission Date: 20120403
  Serious: Yes (Other)
  Sender: FDA-Public Use
  Company Number: US-ROCHE-1015073

PATIENT
  Age: 63 Year
  Sex: Female

DRUGS (3)
  1. AVASTIN [Suspect]
     Indication: MACULAR OEDEMA
     Route: 050
     Dates: start: 20090101
  2. TRIESENCE [Concomitant]
     Indication: EYE SWELLING
     Route: 050
     Dates: start: 20110101
  3. AVASTIN [Suspect]
     Route: 050
     Dates: start: 20111012

REACTIONS (2)
  - DRUG INEFFECTIVE [None]
  - HYPERTENSION [None]
